FAERS Safety Report 15363743 (Version 2)
Quarter: 2018Q4

REPORT INFORMATION
  Report Type: Report from Study
  Country: None (occurrence: CO)
  Receive Date: 20180908
  Receipt Date: 20181004
  Transmission Date: 20190204
  Serious: Yes (Other)
  Sender: FDA-Public Use
  Company Number: CO-ABBVIE-18K-036-2460029-00

PATIENT
  Age: 58 Year
  Sex: Female

DRUGS (1)
  1. HUMIRA [Suspect]
     Active Substance: ADALIMUMAB
     Indication: PSORIATIC ARTHROPATHY
     Route: 058
     Dates: start: 20110223, end: 20180716

REACTIONS (4)
  - Haematuria [Unknown]
  - Bladder prolapse [Unknown]
  - Abdominal pain lower [Unknown]
  - Cystocele [Unknown]

NARRATIVE: CASE EVENT DATE: 201808
